FAERS Safety Report 9542909 (Version 1)
Quarter: 2013Q2

REPORT INFORMATION
  Report Type: Spontaneous
  Country: US (occurrence: None)
  Receive Date: 20130524
  Receipt Date: 20130524
  Transmission Date: 20140414
  Serious: Yes (Other)
  Sender: FDA-Public Use
  Company Number: PHEH2013US003843

PATIENT
  Age: 38 Year
  Sex: Female

DRUGS (1)
  1. GILENYA [Suspect]
     Indication: MULTIPLE SCLEROSIS
     Route: 048

REACTIONS (8)
  - Multiple sclerosis relapse [None]
  - Overweight [None]
  - Optic neuritis [None]
  - Blindness [None]
  - Musculoskeletal stiffness [None]
  - Balance disorder [None]
  - Pain [None]
  - Fatigue [None]
